FAERS Safety Report 6141583-3 (Version None)
Quarter: 2009Q2

REPORT INFORMATION
  Report Type: 
  Country: None (occurrence: None)
  Receive Date: 20090402
  Receipt Date: 20090326
  Transmission Date: 20091009
  Serious: Yes (Death)
  Sender: FDA-Public Use
  Company Number: A0776471A

PATIENT
  Sex: Male

DRUGS (2)
  1. SERETIDE [Suspect]
     Indication: DRUG USE FOR UNKNOWN INDICATION
     Dosage: 1PUFF TWICE PER DAY
     Route: 065
     Dates: start: 20060101, end: 20090228
  2. SPIRIVA [Concomitant]
     Dosage: 1PUFF TWICE PER DAY
     Dates: start: 20060101, end: 20090228

REACTIONS (1)
  - MULTI-ORGAN FAILURE [None]
